FAERS Safety Report 8594501-2 (Version None)
Quarter: 2012Q3

REPORT INFORMATION
  Report Type: 
  Country: None (occurrence: None)
  Receive Date: 20120726
  Receipt Date: 20120713
  Transmission Date: 20120928
  Serious: Yes (Death)
  Sender: FDA-Public Use
  Company Number: ALB-006-11-CN

PATIENT
  Age: 51 Year
  Sex: Male

DRUGS (2)
  1. CEFTAZIDIME [Concomitant]
  2. HUMAN ALBUMIN (SPRINGE/VIENNA) (HUMAN ALBUMIN) [Suspect]
     Indication: HYPOALBUMINAEMIA
     Dosage: 2 G INTRAVENOUS (NOT OTHERWISE SPECIFIED)
     Route: 042
     Dates: start: 20110112, end: 20110112

REACTIONS (8)
  - PALLOR [None]
  - INFUSION RELATED REACTION [None]
  - TACHYPNOEA [None]
  - COMA [None]
  - HEART RATE INCREASED [None]
  - ANAPHYLACTIC SHOCK [None]
  - HYPERHIDROSIS [None]
  - BLOOD PRESSURE DECREASED [None]
